FAERS Safety Report 11562187 (Version 1)
Quarter: 2015Q3

REPORT INFORMATION
  Report Type: Spontaneous
  Country: US (occurrence: US)
  Receive Date: 20150916
  Receipt Date: 20150916
  Transmission Date: 20151125
  Serious: No
  Sender: FDA-Public Use
  Company Number: US-ELI_LILLY_AND_COMPANY-US200811005894

PATIENT
  Sex: Female

DRUGS (7)
  1. FORTEO [Suspect]
     Active Substance: TERIPARATIDE
  2. DILANTIN [Concomitant]
     Active Substance: PHENYTOIN
  3. TOPAMAX [Concomitant]
     Active Substance: TOPIRAMATE
  4. FORTEO [Suspect]
     Active Substance: TERIPARATIDE
  5. TYLENOL [Concomitant]
     Active Substance: ACETAMINOPHEN
  6. NSAID^S [Concomitant]
     Active Substance: UNSPECIFIED INGREDIENT
  7. FORTEO [Suspect]
     Active Substance: TERIPARATIDE
     Indication: OSTEOPOROSIS
     Dosage: 20 UG, DAILY (1/D)
     Dates: start: 200806

REACTIONS (1)
  - Hypoaesthesia [Not Recovered/Not Resolved]
